FAERS Safety Report 7944476-1 (Version None)
Quarter: 2011Q4

REPORT INFORMATION
  Report Type: 
  Country: None (occurrence: None)
  Receive Date: 20111122
  Receipt Date: 20110705
  Transmission Date: 20120403
  Serious: No
  Sender: FDA-Public Use
  Company Number: PHHY2011US60040

PATIENT
  Age: 44 Year
  Sex: Female

DRUGS (6)
  1. GILENYA [Suspect]
     Dosage: 0.5 MG, QD, ORAL
     Route: 048
  2. MULTIVITAMINS (ASCORBIC ACID, ERGOCALCIFEROL, FOLIC ACID, NICOTINAMIDE [Concomitant]
  3. LYRICA [Concomitant]
  4. CLARITIN-D [Concomitant]
  5. ANTACIDS (NO INGREDIENTS/SUBSTANCES) [Concomitant]
  6. THYROID THERAPY (NO INGREDIENTS/SUBSTANCES) [Concomitant]

REACTIONS (2)
  - HYPOAESTHESIA ORAL [None]
  - VISUAL ACUITY REDUCED [None]
